FAERS Safety Report 17174582 (Version 1)
Quarter: 2019Q4

REPORT INFORMATION
  Report Type: Spontaneous
  Country: US (occurrence: US)
  Receive Date: 20191126
  Receipt Date: 20191126
  Transmission Date: 20200122
  Serious: Yes (Death)
  Sender: FDA-Public Use
  Company Number: None

PATIENT
  Age: 43 Year
  Sex: Female

DRUGS (9)
  1. DEXAMETHASON [Concomitant]
     Active Substance: DEXAMETHASONE
  2. METOCLOPRAM [Concomitant]
     Active Substance: METOCLOPRAMIDE
  3. MORPHINE SUL [Concomitant]
     Active Substance: MORPHINE SULFATE
  4. PROCRIT [Suspect]
     Active Substance: ERYTHROPOIETIN
     Indication: PULMONARY MASS
     Dosage: ?          OTHER STRENGTH:40,000 U/ML ;?
     Route: 058
     Dates: start: 20190606, end: 20191125
  5. HYDROCHLOROT [Concomitant]
     Active Substance: HYDROCHLOROTHIAZIDE
  6. LEVOFLOXACIN. [Concomitant]
     Active Substance: LEVOFLOXACIN
  7. HYD POL/CPM [Concomitant]
  8. PROAIR HFA [Concomitant]
     Active Substance: ALBUTEROL SULFATE
  9. METOPROL TAR [Concomitant]

REACTIONS (1)
  - Death [None]

NARRATIVE: CASE EVENT DATE: 20191125
